FAERS Safety Report 9915208 (Version 1)
Quarter: 2014Q1

REPORT INFORMATION
  Report Type: Report from Study
  Country: US (occurrence: US)
  Receive Date: 20140220
  Receipt Date: 20140220
  Transmission Date: 20141002
  Serious: Yes (Other)
  Sender: FDA-Public Use
  Company Number: US-ROCHE-1351451

PATIENT
  Sex: Male

DRUGS (1)
  1. LUCENTIS [Suspect]
     Indication: MACULAR DEGENERATION
     Dosage: LEFT EYE INJECTIONS, LAST DOSE RECEIVED  IN JAN/2014
     Route: 065

REACTIONS (4)
  - Bone marrow failure [Unknown]
  - Anaemia [Unknown]
  - Visual acuity reduced [Unknown]
  - Vision blurred [Recovered/Resolved]
